FAERS Safety Report 10928903 (Version 2)
Quarter: 2015Q2

REPORT INFORMATION
  Report Type: Spontaneous
  Country: US (occurrence: US)
  Receive Date: 20150319
  Receipt Date: 20150524
  Transmission Date: 20150821
  Serious: No
  Sender: FDA-Public Use
  Company Number: US-JNJFOC-20140718585

PATIENT
  Age: 5 Year
  Sex: Male

DRUGS (2)
  1. CONCERTA [Suspect]
     Active Substance: METHYLPHENIDATE HYDROCHLORIDE
     Indication: PRODUCT USED FOR UNKNOWN INDICATION
     Route: 048
     Dates: end: 2014
  2. METHYLPHENIDATE [Suspect]
     Active Substance: METHYLPHENIDATE
     Indication: PRODUCT USED FOR UNKNOWN INDICATION
     Dosage: 10MG THREE TIMES A DAY AND 5MG IN THE EVENING
     Route: 048
     Dates: start: 2014

REACTIONS (3)
  - Product use issue [Unknown]
  - Confusional state [Not Recovered/Not Resolved]
  - Up and down phenomenon [Not Recovered/Not Resolved]

NARRATIVE: CASE EVENT DATE: 2014
